FAERS Safety Report 24218084 (Version 1)
Quarter: 2024Q3

REPORT INFORMATION
  Report Type: Spontaneous
  Country: US (occurrence: None)
  Receive Date: 20240816
  Receipt Date: 20240816
  Transmission Date: 20241016
  Serious: Yes (Hospitalization)
  Sender: Public
  Company Number: None

PATIENT
  Sex: Female

DRUGS (3)
  1. AMBRISENTAN [Suspect]
     Active Substance: AMBRISENTAN
     Indication: Pulmonary arterial hypertension
     Dosage: 10MG 1 TIME A DAY BY MOUTH
     Route: 048
     Dates: start: 202108
  2. UPTRAVHMIITH 1 TITR) [Concomitant]
  3. TADALAFIL [Concomitant]

REACTIONS (1)
  - Gastrointestinal haemorrhage [None]
